FAERS Safety Report 7144991-7 (Version None)
Quarter: 2010Q4

REPORT INFORMATION
  Report Type: 
  Country: None (occurrence: None)
  Receive Date: 20101208
  Receipt Date: 20101202
  Transmission Date: 20110411
  Serious: Yes (Hospitalization)
  Sender: FDA-Public Use
  Company Number: BR-BRISTOL-MYERS SQUIBB COMPANY-15358740

PATIENT
  Age: 69 Year
  Sex: Male
  Weight: 84 kg

DRUGS (8)
  1. COUMADIN [Suspect]
     Indication: THROMBOSIS PROPHYLAXIS
     Dosage: INTERRP ON 2009 FOR SOME DAYS AND RESUMED.ADJUSTED ON 23AUG10
     Route: 048
  2. OS-CAL + D [Concomitant]
     Dates: start: 20100701
  3. CALCIUM [Concomitant]
  4. ASPIRIN [Concomitant]
  5. SYNTHROID [Concomitant]
  6. CRESTOR [Concomitant]
  7. CAPTOPRIL [Concomitant]
  8. METFORMIN HYDROCHLORIDE [Concomitant]

REACTIONS (3)
  - CONJUNCTIVAL HAEMORRHAGE [None]
  - INTERNATIONAL NORMALISED RATIO ABNORMAL [None]
  - OSTEOARTHRITIS [None]
